FAERS Safety Report 8492021 (Version 3)
Quarter: 2012Q4

REPORT INFORMATION
  Report Type: 
  Country: US (occurrence: US)
  Receive Date: 20120403
  Receipt Date: 20121012
  Transmission Date: 20130627
  Serious: Yes (Other)
  Sender: FDA-Public Use
  Company Number: US-PFIZER INC-2011052001

PATIENT
  Age: 39 Year
  Sex: Male

DRUGS (8)
  1. LYRICA [Suspect]
     Dosage: 150 mg, 3x/day (1 capsule 3 times a day)
  2. AMITRIPTYLINE [Concomitant]
     Dosage: 100 mg, 1x/day before bed
  3. AMITRIPTYLINE [Concomitant]
     Dosage: 75 mg, 1x/day before bed
  4. OPANA ER [Concomitant]
     Dosage: 30mg tablet sustained retard, 2x/day
  5. OXYCODONE [Concomitant]
     Dosage: 15 mg, 3x/day
  6. PROMETHAZINE [Concomitant]
     Dosage: 25 mg, 3x/day
  7. ZANAFLEX [Concomitant]
     Dosage: 4 mg, 3x/day
  8. METHADONE [Concomitant]
     Dosage: 5 mg, 3x/day (1 tablet every 8 hours)

REACTIONS (9)
  - Arthritis [Unknown]
  - Intervertebral disc degeneration [Unknown]
  - Intervertebral disc protrusion [Unknown]
  - Spinal disorder [Unknown]
  - Gastrooesophageal reflux disease [Unknown]
  - Back pain [Unknown]
  - Migraine [Unknown]
  - Seasonal allergy [Unknown]
  - Sleep disorder [Unknown]
